FAERS Safety Report 26168194 (Version 1)
Quarter: 2025Q4

REPORT INFORMATION
  Report Type: Spontaneous
  Country: US (occurrence: US)
  Receive Date: 20251217
  Receipt Date: 20251217
  Transmission Date: 20260118
  Serious: No
  Sender: PACIRA
  Company Number: US-ORG100016242-2025000068

PATIENT

DRUGS (7)
  1. EXPAREL [Suspect]
     Active Substance: BUPIVACAINE
     Indication: Pain management
     Dosage: NOT PROVIDED
     Route: 050
     Dates: start: 20240827, end: 20240827
  2. EXPAREL [Suspect]
     Active Substance: BUPIVACAINE
     Indication: Pain management
     Dosage: NOT PROVIDED
     Route: 050
     Dates: start: 20240827, end: 20240827
  3. EXPAREL [Suspect]
     Active Substance: BUPIVACAINE
     Indication: Pain management
     Dosage: NOT PROVIDED
     Route: 050
     Dates: start: 20240827, end: 20240827
  4. EXPAREL [Suspect]
     Active Substance: BUPIVACAINE
     Indication: Pain management
     Dosage: NOT PROVIDED
     Route: 050
     Dates: start: 20240827, end: 20240827
  5. BUPIVACAINE [Suspect]
     Active Substance: BUPIVACAINE
     Indication: Pain management
     Dosage: NOT PROVIDED
     Route: 050
     Dates: start: 20240827, end: 20240827
  6. EPINEPHRINE [Suspect]
     Active Substance: EPINEPHRINE
     Indication: Pain management
     Dosage: NOT PROVIDED
     Route: 050
     Dates: start: 20240827, end: 20240827
  7. SALINE [Suspect]
     Active Substance: SODIUM CHLORIDE
     Indication: Pain management
     Dosage: NOT PROVIDED
     Route: 050
     Dates: start: 20240827, end: 20240827

REACTIONS (2)
  - Arthritis infective [Unknown]
  - Labelled drug-drug interaction medication error [Unknown]

NARRATIVE: CASE EVENT DATE: 20240827
